FAERS Safety Report 14025004 (Version 2)
Quarter: 2017Q4

REPORT INFORMATION
  Report Type: Spontaneous
  Country: US (occurrence: US)
  Receive Date: 20170928
  Receipt Date: 20171016
  Transmission Date: 20180321
  Serious: Yes (Other)
  Sender: FDA-Public Use
  Company Number: US-SA-2017SA026747

PATIENT
  Age: 36 Year
  Sex: Female

DRUGS (15)
  1. BUTALBITAL AND ACETAMINOPHEN [Concomitant]
     Active Substance: ACETAMINOPHEN\BUTALBITAL
  2. VITAMIN D [Concomitant]
     Active Substance: CHOLECALCIFEROL
  3. ONZETRA [Concomitant]
     Active Substance: SUMATRIPTAN SUCCINATE
  4. IBUPROFEN. [Concomitant]
     Active Substance: IBUPROFEN
  5. HORIZANT [Concomitant]
     Active Substance: GABAPENTIN ENACARBIL
  6. GABAPENTIN. [Concomitant]
     Active Substance: GABAPENTIN
  7. TURMERIC [Concomitant]
     Active Substance: HERBALS\TURMERIC
  8. GARLIC. [Concomitant]
     Active Substance: GARLIC
  9. AUBAGIO [Suspect]
     Active Substance: TERIFLUNOMIDE
     Indication: MULTIPLE SCLEROSIS
     Route: 048
     Dates: start: 20170210
  10. FLAXSEED [Concomitant]
     Active Substance: FLAX SEED
  11. CRANBERRY. [Concomitant]
     Active Substance: CRANBERRY
  12. ALPRAZOLAM. [Concomitant]
     Active Substance: ALPRAZOLAM
  13. SUMATRIPTAN SUCCINATE. [Concomitant]
     Active Substance: SUMATRIPTAN SUCCINATE
  14. VITAMIN B COMPLEX [Concomitant]
     Active Substance: CYANOCOBALAMIN\DEXPANTHENOL\NIACINAMIDE\PYRIDOXINE HYDROCHLORIDE\RIBOFLAVIN 5^-PHOSPHATE SODIUM\THIAMINE HYDROCHLORIDE\VITAMIN B COMPLEX
  15. ALBUTEROL SULFATE. [Concomitant]
     Active Substance: ALBUTEROL SULFATE

REACTIONS (14)
  - Multiple sclerosis [Unknown]
  - Depressed mood [Unknown]
  - Bradyphrenia [Unknown]
  - Vertigo [Unknown]
  - Nausea [Unknown]
  - Alopecia [Unknown]
  - Ligament sprain [Unknown]
  - Fatigue [Unknown]
  - Pruritus [Unknown]
  - Dysarthria [Unknown]
  - Fall [Unknown]
  - Diarrhoea [Recovered/Resolved]
  - Decreased interest [Unknown]
  - Urinary incontinence [Unknown]

NARRATIVE: CASE EVENT DATE: 201702
